FAERS Safety Report 4654670-3 (Version None)
Quarter: 2005Q2

REPORT INFORMATION
  Report Type: 
  Country: None (occurrence: None)
  Receive Date: 20050503
  Receipt Date: 20050503
  Transmission Date: 20051028
  Serious: Yes (Disabling)
  Sender: FDA-Public Use
  Company Number: None

PATIENT
  Age: 67 Year
  Sex: Female
  Weight: 63.05 kg

DRUGS (8)
  1. CIPRO [Suspect]
     Indication: CYSTITIS
     Dosage: TABLETS UNK DOSE ONCE DAILY
     Dates: start: 20040813
  2. CIPRO [Suspect]
     Indication: KIDNEY INFECTION
     Dosage: TABLETS UNK DOSE ONCE DAILY
     Dates: start: 20040813
  3. SYNTHROID [Concomitant]
  4. MULTI-VITAMIN [Concomitant]
  5. VIT C TAB [Concomitant]
  6. VITAMIN E [Concomitant]
  7. CALCIUM GLUCONATE [Concomitant]
  8. GLUCOSAMINE [Concomitant]

REACTIONS (1)
  - ROTATOR CUFF SYNDROME [None]
